FAERS Safety Report 4364708-9 (Version None)
Quarter: 2004Q2

REPORT INFORMATION
  Report Type: 
  Country: None (occurrence: None)
  Receive Date: 20040521
  Receipt Date: 20040511
  Transmission Date: 20050107
  Serious: Yes (Life-Threatening, Hospitalization, Disabling)
  Sender: FDA-Public Use
  Company Number: 2004UW10302

PATIENT
  Age: 69 Year
  Sex: Female

DRUGS (9)
  1. ELAVIL [Suspect]
     Dosage: 75 MG HS PO
     Route: 048
  2. SPIRONOLACTONE [Suspect]
     Indication: HYPERKALAEMIA
     Dosage: 25 MG DAILY
  3. DIGOXIN [Suspect]
     Indication: BRADYCARDIA
     Dosage: 125 MG DAILY
  4. VASOTEC [Suspect]
     Dosage: 10 MG DAILY
  5. BACLOFEN [Concomitant]
  6. BUMETANIDE [Concomitant]
  7. LEVOTHYROXINE SODIUM [Concomitant]
  8. TETRABENAZINE [Concomitant]
  9. WARFARIN SODIUM [Concomitant]

REACTIONS (4)
  - BRADYCARDIA [None]
  - ELECTROCARDIOGRAM CHANGE [None]
  - HYPERKALAEMIA [None]
  - RENAL FAILURE ACUTE [None]
